FAERS Safety Report 5847680-1 (Version None)
Quarter: 2008Q3

REPORT INFORMATION
  Report Type: 
  Country: None (occurrence: None)
  Receive Date: 20080814
  Receipt Date: 20080730
  Transmission Date: 20090109
  Serious: Yes (Hospitalization)
  Sender: FDA-Public Use
  Company Number: S08-JPN-02087-01

PATIENT
  Age: 72 Year
  Sex: Female
  Weight: 47.5 kg

DRUGS (16)
  1. ESCITALOPRAM OXALATE [Suspect]
     Indication: MAJOR DEPRESSION
     Dosage: 10 MG, (10 MG, 1 IN 1 D),ORAL
     Route: 048
     Dates: start: 20080328, end: 20080408
  2. ESCITALOPRAM OXALATE [Suspect]
     Indication: MAJOR DEPRESSION
     Dosage: 20 MG (20 MG, 1 IN 1 D), ORAL
     Route: 048
     Dates: start: 20080409, end: 20080520
  3. NORVASC (ALMODIPINE BESILATE) (TABLETS) (AMLODIPINE BESILATE) [Concomitant]
  4. GASTER (TABLETS) [Concomitant]
  5. DIGOSIN (DIGOXIN) (TABLETS) (DIGOXIN) [Concomitant]
  6. PERSANTIN (DIPYRIDAMOLE) (TABLETS) (DIPYRIDAMOLE) [Concomitant]
  7. MAGMITT (MAGNESIUM) (TABLETS) [Concomitant]
  8. PRIMPERAN (METOCLOPRAMIDE) (TABLETS) (METOCLOPRAMIDE) [Concomitant]
  9. RIZE (CLOTIAZEPAM) (TABLETS) (CLOTIAZEPAM) [Concomitant]
  10. ROHYPNOL (FLUNITRAZEPAM) (TABLETS) (FLUNITRAZEPAM) [Concomitant]
  11. ALOSENN (TABLETS) [Concomitant]
  12. MYSLEE (ZOLPIDEM TARTRATE) (TABLETS) (ZOLPIDEM TARTRATE) [Concomitant]
  13. CONSTAN (ALPRAZOLAM) (TABLETS) (ALPRAZOLAM) [Concomitant]
  14. TOFRANIL (IMIPRAMINE HYDROCHLORIDE) (TABLETS) (IMIPRAMINE HYDROCHLORID [Concomitant]
  15. LAXOBERON (SODIUM PICOSULFATE) (TABLETS) (SODIUM PICOSULFATE) [Concomitant]
  16. MAGNESIUM OXIDE (TABLETS) [Concomitant]

REACTIONS (12)
  - BLOOD ALKALINE PHOSPHATASE INCREASED [None]
  - BLOOD CHOLESTEROL INCREASED [None]
  - BLOOD CREATININE DECREASED [None]
  - BLOOD GLUCOSE INCREASED [None]
  - DRUG INEFFECTIVE [None]
  - DYSGEUSIA [None]
  - HYPOPHAGIA [None]
  - IRRITABILITY [None]
  - NIGHT SWEATS [None]
  - PANIC REACTION [None]
  - PSYCHOMOTOR RETARDATION [None]
  - WEIGHT DECREASED [None]
